FAERS Safety Report 25060026 (Version 2)
Quarter: 2025Q1

REPORT INFORMATION
  Report Type: Spontaneous
  Country: GB (occurrence: GB)
  Receive Date: 20250310
  Receipt Date: 20250312
  Transmission Date: 20250408
  Serious: Yes (Other)
  Sender: UCB
  Company Number: None

PATIENT
  Age: 72 Year
  Sex: Female
  Weight: 71 kg

DRUGS (2)
  1. ROTIGOTINE [Suspect]
     Active Substance: ROTIGOTINE
     Indication: Restless legs syndrome
     Dosage: 2MG PATCH AT NIGHT
     Route: 062
     Dates: end: 202502
  2. SITAGLIPTIN [Suspect]
     Active Substance: SITAGLIPTIN
     Indication: Product used for unknown indication

REACTIONS (2)
  - Restless leg augmentation syndrome [Recovering/Resolving]
  - Pain [Unknown]

NARRATIVE: CASE EVENT DATE: 20230101
